FAERS Safety Report 6724040-2 (Version None)
Quarter: 2010Q2

REPORT INFORMATION
  Report Type: 
  Country: None (occurrence: None)
  Receive Date: 20100513
  Receipt Date: 20100505
  Transmission Date: 20101027
  Serious: Yes (Hospitalization)
  Sender: FDA-Public Use
  Company Number: B0594124A

PATIENT
  Sex: Female
  Weight: 62 kg

DRUGS (4)
  1. LAPATINIB [Suspect]
     Route: 048
     Dates: start: 20090604, end: 20090904
  2. NAVELBINE [Suspect]
     Dosage: 37.35MG PER DAY
     Route: 042
     Dates: start: 20090611
  3. PREVISCAN [Concomitant]
     Indication: PULMONARY EMBOLISM
     Route: 048
     Dates: start: 20090806
  4. OMEPRAZOLE [Concomitant]
     Route: 048
     Dates: start: 20090716

REACTIONS (1)
  - FEBRILE NEUTROPENIA [None]
